FAERS Safety Report 10056550 (Version 1)
Quarter: 2014Q2

REPORT INFORMATION
  Report Type: Spontaneous
  Country: US (occurrence: US)
  Receive Date: 20140403
  Receipt Date: 20140403
  Transmission Date: 20141212
  Serious: No
  Sender: FDA-Public Use
  Company Number: US-PFIZER INC-2014092950

PATIENT
  Sex: Female
  Weight: 72.11 kg

DRUGS (2)
  1. GEMFIBROZIL [Suspect]
     Dosage: UNK
  2. METFORMIN HCL [Suspect]
     Dosage: UNK

REACTIONS (1)
  - Rash generalised [Recovered/Resolved]
